FAERS Safety Report 14373479 (Version 1)
Quarter: 2018Q1

REPORT INFORMATION
  Report Type: Report from Study
  Country: JP (occurrence: JP)
  Receive Date: 20180110
  Receipt Date: 20180110
  Transmission Date: 20180509
  Serious: Yes (Other)
  Sender: FDA-Public Use
  Company Number: JP-BAUSCH-BL-2018-000249

PATIENT
  Age: 65 Year
  Sex: Female
  Weight: 47 kg

DRUGS (6)
  1. TOPICAL STEROID THERAPY [Concomitant]
     Indication: PRODUCT USED FOR UNKNOWN INDICATION
  2. HIRUDOID SOFT OINTMENT [Concomitant]
     Indication: PRODUCT USED FOR UNKNOWN INDICATION
  3. EURAX [Concomitant]
     Active Substance: CROTAMITON
     Indication: PRODUCT USED FOR UNKNOWN INDICATION
  4. WHITE PETROLEUM [Concomitant]
     Active Substance: PETROLATUM
     Indication: PRODUCT USED FOR UNKNOWN INDICATION
  5. ANTEBATE [Concomitant]
     Active Substance: BETAMETHASONE DIPROPIONATE
     Indication: PRODUCT USED FOR UNKNOWN INDICATION
  6. TARGRETIN [Suspect]
     Active Substance: BEXAROTENE
     Indication: MYCOSIS FUNGOIDES
     Route: 048
     Dates: start: 20170223, end: 20170417

REACTIONS (5)
  - Squamous cell carcinoma of skin [Not Recovered/Not Resolved]
  - Rash pustular [Recovered/Resolved]
  - Hypothyroidism [Recovered/Resolved]
  - Sclerema [Not Recovered/Not Resolved]
  - Hyperlipidaemia [Not Recovered/Not Resolved]

NARRATIVE: CASE EVENT DATE: 20170224
